FAERS Safety Report 5356481-2 (Version None)
Quarter: 2007Q2

REPORT INFORMATION
  Report Type: 
  Country: None (occurrence: None)
  Receive Date: 20070530
  Receipt Date: 20061211
  Transmission Date: 20071010
  Serious: Yes (Other)
  Sender: FDA-Public Use
  Company Number: US200608005782

PATIENT
  Age: 48 Year
  Sex: Male
  Weight: 160.5 kg

DRUGS (9)
  1. ZYPREXA [Suspect]
     Dates: start: 19900101
  2. ABILIFY [Concomitant]
  3. SEROQUEL [Concomitant]
  4. RISPERIDONE [Concomitant]
  5. DEPAKOTE [Concomitant]
  6. WELLBUTRIN [Concomitant]
  7. REMERON [Concomitant]
  8. ZOLOFT [Concomitant]
  9. EFFEXOR [Concomitant]

REACTIONS (2)
  - DIABETES MELLITUS [None]
  - DIABETIC COMA [None]
